FAERS Safety Report 9527950 (Version 1)
Quarter: 2013Q3

REPORT INFORMATION
  Report Type: Spontaneous
  Country: PL (occurrence: None)
  Receive Date: 20130913
  Receipt Date: 20130913
  Transmission Date: 20140515
  Serious: Yes (Other)
  Sender: FDA-Public Use
  Company Number: ZYD-13-AE-241

PATIENT
  Age: 58 Year
  Sex: Male

DRUGS (5)
  1. RIBAVIRIN [Suspect]
     Indication: HEPATITIS C
     Dates: start: 20130529
  2. INVESTIGATIONAL PRODUCT [Suspect]
     Dosage: 150/100/25
     Route: 048
     Dates: start: 20130529
  3. CIPROFLOXACIN [Concomitant]
  4. METOPROLOL TARTRATE [Concomitant]
  5. PERINDOPRIL [Concomitant]

REACTIONS (1)
  - Atrial fibrillation [None]
